FAERS Safety Report 25337769 (Version 1)
Quarter: 2025Q2

REPORT INFORMATION
  Report Type: Spontaneous
  Country: CN (occurrence: CN)
  Receive Date: 20250520
  Receipt Date: 20250520
  Transmission Date: 20250716
  Serious: Yes (Hospitalization, Other)
  Sender: PFIZER
  Company Number: CN-PFIZER INC-PV202500060067

PATIENT
  Age: 54 Year
  Sex: Male
  Weight: 71 kg

DRUGS (2)
  1. MEROPENEM [Suspect]
     Active Substance: MEROPENEM
     Indication: Pneumonia
     Dosage: 1 G, 2X/DAY
     Route: 041
     Dates: start: 20250427, end: 20250502
  2. OMADACYCLINE TOSYLATE [Suspect]
     Active Substance: OMADACYCLINE TOSYLATE
     Indication: Pneumonia
     Dosage: 0.1 G, DAILY
     Route: 041
     Dates: start: 20250427, end: 20250504

REACTIONS (4)
  - Amylase increased [Recovering/Resolving]
  - Lipase increased [Recovering/Resolving]
  - Gallbladder enlargement [Unknown]
  - Abdominal pain [Recovering/Resolving]
